FAERS Safety Report 7561747-1 (Version None)
Quarter: 2011Q2

REPORT INFORMATION
  Report Type: 
  Country: None (occurrence: None)
  Receive Date: 20110621
  Receipt Date: 20110610
  Transmission Date: 20111010
  Serious: Yes (Other)
  Sender: FDA-Public Use
  Company Number: CA-BAXTER-2011BH018199

PATIENT
  Age: 48 Year
  Sex: Male

DRUGS (4)
  1. GAMMAGARD LIQUID [Suspect]
     Indication: IMMUNODEFICIENCY
     Route: 042
     Dates: start: 20110524, end: 20110524
  2. GAMMAGARD LIQUID [Suspect]
     Route: 042
     Dates: start: 20110524, end: 20110524
  3. GAMMAGARD LIQUID [Suspect]
     Route: 042
     Dates: start: 20110524, end: 20110524
  4. GAMMAGARD LIQUID [Suspect]
     Indication: OFF LABEL USE
     Route: 042
     Dates: start: 20110524, end: 20110524

REACTIONS (5)
  - PRURITUS [None]
  - LIP SWELLING [None]
  - THROAT TIGHTNESS [None]
  - URTICARIA [None]
  - BLOOD POTASSIUM DECREASED [None]
